FAERS Safety Report 8853293 (Version 2)
Quarter: 2013Q1

REPORT INFORMATION
  Report Type: Spontaneous
  Country: JP (occurrence: JP)
  Receive Date: 20121022
  Receipt Date: 20130124
  Transmission Date: 20140127
  Serious: Yes (Other)
  Sender: FDA-Public Use
  Company Number: JP-009507513-1206USA04416

PATIENT
  Age: 67 Year
  Sex: Female

DRUGS (10)
  1. FOSAPREPITANT DIMEGLUMINE [Suspect]
     Indication: PROPHYLAXIS OF NAUSEA AND VOMITING
     Dosage: 150 MG, ONCE
     Route: 041
     Dates: start: 20120312, end: 20120312
  2. FOSAPREPITANT DIMEGLUMINE [Suspect]
     Dosage: 150 MG, ONCE
     Route: 041
     Dates: start: 20120402, end: 20120402
  3. ALOXI [Concomitant]
     Dates: start: 20120312, end: 20120312
  4. ALOXI [Concomitant]
     Dosage: UNK
     Dates: start: 20120402, end: 20120402
  5. DECADRON PHOSPHATE INJECTION [Concomitant]
     Dosage: UNK
     Route: 042
     Dates: start: 20120312, end: 20120312
  6. DECADRON PHOSPHATE INJECTION [Concomitant]
     Dosage: UNK
     Dates: start: 20120402, end: 20120402
  7. FARMORUBICIN [Concomitant]
     Indication: BREAST CANCER
     Dosage: UNK
     Dates: start: 20120312, end: 20120312
  8. FARMORUBICIN [Concomitant]
     Dosage: UNK
     Dates: start: 20120402, end: 20120402
  9. ENDOXAN [Concomitant]
     Indication: BREAST CANCER
     Dosage: UNK
     Dates: start: 20120312, end: 20120312
  10. ENDOXAN [Concomitant]
     Dosage: UNK
     Dates: start: 20120402, end: 20120402

REACTIONS (4)
  - Injection site erythema [Not Recovered/Not Resolved]
  - Injection site pain [Not Recovered/Not Resolved]
  - Injection site induration [Not Recovered/Not Resolved]
  - Injection site phlebitis [Not Recovered/Not Resolved]
